FAERS Safety Report 9139817 (Version 1)
Quarter: 2013Q1

REPORT INFORMATION
  Report Type: Spontaneous
  Country: BR (occurrence: BR)
  Receive Date: 20130305
  Receipt Date: 20130305
  Transmission Date: 20140127
  Serious: Yes (Other)
  Sender: FDA-Public Use
  Company Number: BR-PFIZER INC-2013074284

PATIENT
  Age: 70 Year
  Sex: Male
  Weight: 66 kg

DRUGS (1)
  1. LIPITOR [Suspect]
     Indication: BLOOD TRIGLYCERIDES
     Dosage: 40 MG (2 TABLETS OF 20MG), DAILY
     Route: 048
     Dates: start: 2009

REACTIONS (1)
  - Cardiac disorder [Unknown]
